FAERS Safety Report 13167018 (Version 1)
Quarter: 2017Q1

REPORT INFORMATION
  Report Type: Spontaneous
  Country: US (occurrence: US)
  Receive Date: 20170130
  Receipt Date: 20170130
  Transmission Date: 20170428
  Serious: Yes (Hospitalization)
  Sender: FDA-Public Use
  Company Number: None

PATIENT
  Age: 63 Year
  Sex: Female
  Weight: 69.75 kg

DRUGS (2)
  1. KADCYLA [Suspect]
     Active Substance: ADO-TRASTUZUMAB EMTANSINE
     Indication: PRODUCT USED FOR UNKNOWN INDICATION
     Dosage: ?          OTHER FREQUENCY:EVERY THREE WEEKS;?
     Route: 042
     Dates: start: 20161116, end: 20161207
  2. KADCYLA [Suspect]
     Active Substance: ADO-TRASTUZUMAB EMTANSINE
     Indication: BREAST CANCER METASTATIC
     Dosage: ?          OTHER FREQUENCY:EVERY THREE WEEKS;?
     Route: 042
     Dates: start: 20161116, end: 20161207

REACTIONS (3)
  - Hypoxia [None]
  - Pneumonitis [None]
  - Haemodynamic instability [None]

NARRATIVE: CASE EVENT DATE: 20161210
